FAERS Safety Report 21260570 (Version 2)
Quarter: 2022Q3

REPORT INFORMATION
  Report Type: Report from Study
  Country: AT (occurrence: AT)
  Receive Date: 20220826
  Receipt Date: 20220921
  Transmission Date: 20221027
  Serious: Yes (Hospitalization)
  Sender: FDA-Public Use
  Company Number: AT-UNITED THERAPEUTICS-UNT-2022-013769

PATIENT

DRUGS (4)
  1. TREPROSTINIL SODIUM [Suspect]
     Active Substance: TREPROSTINIL SODIUM
     Indication: Pulmonary arterial hypertension
     Dosage: UNK, CONTINUING
     Route: 058
     Dates: start: 20220128
  2. TREPROSTINIL SODIUM [Suspect]
     Active Substance: TREPROSTINIL SODIUM
     Dosage: 0.0325 ?G/KG, CONTINUING (AT AN INFUSION RATE OF 0.039 ML/H)
     Route: 058
     Dates: start: 2022
  3. TREPROSTINIL SODIUM [Suspect]
     Active Substance: TREPROSTINIL SODIUM
     Dosage: 0.040 ?G/KG, CONTINUING (AT AN INFUSION RATE OF 0.024 ML/HR)
     Route: 058
     Dates: start: 2022
  4. TREPROSTINIL SODIUM [Suspect]
     Active Substance: TREPROSTINIL SODIUM
     Dosage: 0.0375 ?G/KG, CONTINUING (AT AN INFUSION RATE OF 0.023 ML/H)
     Route: 058
     Dates: start: 2022

REACTIONS (3)
  - Laboratory test abnormal [Recovered/Resolved]
  - Diarrhoea [Recovered/Resolved]
  - Nausea [Recovered/Resolved]

NARRATIVE: CASE EVENT DATE: 20220620
